FAERS Safety Report 6596468-5 (Version None)
Quarter: 2010Q1

REPORT INFORMATION
  Report Type: 
  Country: None (occurrence: None)
  Receive Date: 20100223
  Receipt Date: 20100216
  Transmission Date: 20100710
  Serious: Yes (Hospitalization)
  Sender: FDA-Public Use
  Company Number: IE-AMGEN-KDL388907

PATIENT
  Sex: Female

DRUGS (1)
  1. NEULASTA [Suspect]
     Indication: CHEMOTHERAPY
     Dates: start: 20100120

REACTIONS (4)
  - BONE PAIN [None]
  - NEUTROPENIA [None]
  - ORAL PAIN [None]
  - PAIN IN JAW [None]
